FAERS Safety Report 9992860 (Version 1)
Quarter: 2014Q1

REPORT INFORMATION
  Report Type: Spontaneous
  Country: US (occurrence: US)
  Receive Date: 20140310
  Receipt Date: 20140310
  Transmission Date: 20141002
  Serious: No
  Sender: FDA-Public Use
  Company Number: US-ASTRAZENECA-2013SE59035

PATIENT
  Sex: Female

DRUGS (2)
  1. RAMIPRIL [Suspect]
     Route: 048
  2. NEXIUM (PFIZER) [Suspect]
     Route: 048

REACTIONS (5)
  - Herpes zoster [Unknown]
  - Pain [Unknown]
  - Varicella [Unknown]
  - Gastrooesophageal reflux disease [Unknown]
  - Rash [Recovered/Resolved]
